FAERS Safety Report 5718899-5 (Version None)
Quarter: 2008Q2

REPORT INFORMATION
  Report Type: 
  Country: None (occurrence: None)
  Receive Date: 20080425
  Receipt Date: 20080415
  Transmission Date: 20081010
  Serious: Yes (Hospitalization, Disabling)
  Sender: FDA-Public Use
  Company Number: US-MERCK-0705USA01548

PATIENT
  Age: 80 Year
  Sex: Female

DRUGS (2)
  1. FOSAMAX [Suspect]
     Indication: OSTEOPOROSIS
     Route: 048
     Dates: end: 20070101
  2. CELEBREX [Concomitant]
     Route: 065
     Dates: start: 20000101, end: 20060101

REACTIONS (20)
  - ADVERSE EVENT [None]
  - BACK DISORDER [None]
  - BLOOD CHOLESTEROL INCREASED [None]
  - BREAST CANCER [None]
  - CARDIAC MURMUR [None]
  - DIABETES MELLITUS [None]
  - FALL [None]
  - FIBROMYALGIA [None]
  - HYPERTENSION [None]
  - MUSCULOSKELETAL PAIN [None]
  - NERVOUSNESS [None]
  - ORAL DISORDER [None]
  - PAIN IN JAW [None]
  - RESORPTION BONE INCREASED [None]
  - RHEUMATOID ARTHRITIS [None]
  - SINUS DISORDER [None]
  - SJOGREN'S SYNDROME [None]
  - STOMATITIS [None]
  - TEMPOROMANDIBULAR JOINT SYNDROME [None]
  - TOOTH LOSS [None]
